FAERS Safety Report 8900229 (Version 2)
Quarter: 2012Q4

REPORT INFORMATION
  Report Type: 
  Country: US (occurrence: US)
  Receive Date: 20121109
  Receipt Date: 20121119
  Transmission Date: 20130627
  Serious: Yes (Hospitalization)
  Sender: FDA-Public Use
  Company Number: US-PFIZER INC-2012279137

PATIENT
  Sex: Male

DRUGS (3)
  1. PROTONIX [Suspect]
     Dosage: UNK
  2. VIAGRA [Suspect]
     Dosage: UNK
  3. PRISTIQ [Suspect]
     Dosage: UNK

REACTIONS (2)
  - Gastritis [Unknown]
  - Hernia [Unknown]
